FAERS Safety Report 6919451-6 (Version None)
Quarter: 2010Q3

REPORT INFORMATION
  Report Type: 
  Country: None (occurrence: None)
  Receive Date: 20100811
  Receipt Date: 20100804
  Transmission Date: 20110219
  Serious: Yes (Hospitalization)
  Sender: FDA-Public Use
  Company Number: B0668570A

PATIENT
  Age: 5 Year

DRUGS (1)
  1. LAMICTAL [Suspect]
     Indication: PRODUCT USED FOR UNKNOWN INDICATION
     Dosage: 75MG TWICE PER DAY
     Route: 048
     Dates: end: 20100101

REACTIONS (3)
  - HAEMOGLOBIN DECREASED [None]
  - OSMOTIC DEMYELINATION SYNDROME [None]
  - PYREXIA [None]
